FAERS Safety Report 10871452 (Version 1)
Quarter: 2015Q1

REPORT INFORMATION
  Report Type: Spontaneous
  Country: US (occurrence: None)
  Receive Date: 20150223
  Receipt Date: 20150223
  Transmission Date: 20150721
  Serious: No
  Sender: FDA-Public Use
  Company Number: None

PATIENT
  Age: 44 Year
  Sex: Female
  Weight: 83.92 kg

DRUGS (2)
  1. CEFUROXIME. [Suspect]
     Active Substance: CEFUROXIME
     Indication: INFECTION
     Dosage: 1 TABLET  TWICE DAILY   TAKEN BY MOUTH
     Route: 048
  2. SYNDRTROID [Concomitant]

REACTIONS (2)
  - Product physical issue [None]
  - Foreign body [None]

NARRATIVE: CASE EVENT DATE: 20150219
